FAERS Safety Report 12300932 (Version 4)
Quarter: 2016Q4

REPORT INFORMATION
  Report Type: Report from Study
  Country: CA (occurrence: CA)
  Receive Date: 20160425
  Receipt Date: 20161111
  Transmission Date: 20170207
  Serious: Yes (Hospitalization, Other)
  Sender: FDA-Public Use
  Company Number: CA-AMGEN-CANSL2016050615

PATIENT
  Age: 80 Year
  Sex: Female

DRUGS (1)
  1. PROLIA [Suspect]
     Active Substance: DENOSUMAB
     Indication: PRODUCT USED FOR UNKNOWN INDICATION
     Dosage: 60 MG/ML, UNK
     Route: 065
     Dates: start: 20150511

REACTIONS (5)
  - Sepsis [Unknown]
  - Kidney infection [Unknown]
  - Arrhythmia [Unknown]
  - Hip fracture [Unknown]
  - Hospitalisation [Unknown]

NARRATIVE: CASE EVENT DATE: 201602
